FAERS Safety Report 25717645 (Version 3)
Quarter: 2025Q3

REPORT INFORMATION
  Report Type: Spontaneous
  Country: HK (occurrence: HK)
  Receive Date: 20250822
  Receipt Date: 20250930
  Transmission Date: 20251021
  Serious: Yes (Hospitalization, Other)
  Sender: CALLIDITAS THERAPEUTICS AB
  Company Number: HK-EVEREST-20250800437

PATIENT
  Age: 40 Year
  Sex: Male

DRUGS (4)
  1. BUDESONIDE [Suspect]
     Active Substance: BUDESONIDE
     Indication: IgA nephropathy
     Route: 048
  2. BUDESONIDE [Suspect]
     Active Substance: BUDESONIDE
     Indication: IgA nephropathy
     Dosage: 8 MG
     Route: 048
  3. BUDESONIDE [Suspect]
     Active Substance: BUDESONIDE
     Indication: IgA nephropathy
     Dosage: 4 MG, QD
     Route: 048
  4. PREDNISOLONE [Concomitant]
     Active Substance: PREDNISOLONE
     Indication: IgA nephropathy

REACTIONS (4)
  - Cushing^s syndrome [Unknown]
  - Oedema [Unknown]
  - Prescribed underdose [Unknown]
  - Pneumonia [Unknown]
